FAERS Safety Report 6825847-3 (Version None)
Quarter: 2010Q3

REPORT INFORMATION
  Report Type: 
  Country: None (occurrence: None)
  Receive Date: 20100709
  Receipt Date: 20100625
  Transmission Date: 20110219
  Serious: Yes (Other)
  Sender: FDA-Public Use
  Company Number: GB-RANBAXY-2010RR-35462

PATIENT
  Age: 48 Year
  Sex: Female

DRUGS (2)
  1. AMOXICILLIN [Suspect]
     Dosage: 250 MG, UNK
     Route: 048
     Dates: start: 20100504, end: 20100506
  2. BECLOMETHASONE DIPROPIONATE [Concomitant]
     Indication: ASTHMA

REACTIONS (4)
  - CONDITION AGGRAVATED [None]
  - DYSPEPSIA [None]
  - RASH MACULAR [None]
  - RASH PRURITIC [None]
